FAERS Safety Report 13156866 (Version 1)
Quarter: 2017Q1

REPORT INFORMATION
  Report Type: Other
  Country: JP (occurrence: JP)
  Receive Date: 20170127
  Receipt Date: 20170127
  Transmission Date: 20170428
  Serious: No
  Sender: FDA-Public Use
  Company Number: JP-LUPIN PHARMACEUTICALS INC.-2016-00543

PATIENT
  Age: 61 Year
  Sex: Male

DRUGS (6)
  1. FUROSEMIDE. [Concomitant]
     Active Substance: FUROSEMIDE
     Indication: CARDIAC FAILURE CHRONIC
     Route: 065
  2. CARVEDILOL. [Suspect]
     Active Substance: CARVEDILOL
     Indication: CARDIAC FAILURE CHRONIC
     Dosage: 1.25 MG
     Route: 065
  3. CARVEDILOL. [Suspect]
     Active Substance: CARVEDILOL
     Dosage: DOSE INCREASED
     Route: 065
  4. CARVEDILOL. [Suspect]
     Active Substance: CARVEDILOL
     Dosage: DOSE INCREASED
     Route: 065
  5. CARVEDILOL. [Suspect]
     Active Substance: CARVEDILOL
     Dosage: 2.5 MG
     Route: 065
  6. METILDIGOXIN [Concomitant]
     Active Substance: METILDIGOXIN
     Indication: CARDIAC FAILURE CHRONIC
     Route: 065

REACTIONS (2)
  - Hypotension [Unknown]
  - Dizziness [Unknown]
